FAERS Safety Report 19645114 (Version 1)
Quarter: 2021Q3

REPORT INFORMATION
  Report Type: Spontaneous
  Country: HR (occurrence: HR)
  Receive Date: 20210802
  Receipt Date: 20210802
  Transmission Date: 20211014
  Serious: Yes (Other)
  Sender: FDA-Public Use
  Company Number: HR-JNJFOC-20180516116

PATIENT
  Age: 4 Decade
  Sex: Female

DRUGS (6)
  1. REMICADE [Suspect]
     Active Substance: INFLIXIMAB
     Route: 042
     Dates: start: 201805
  2. IMURAN [Concomitant]
     Active Substance: AZATHIOPRINE
     Route: 065
     Dates: start: 2016, end: 2017
  3. BUDOSAN [Concomitant]
     Active Substance: BUDESONIDE
     Route: 054
  4. REMICADE [Suspect]
     Active Substance: INFLIXIMAB
     Indication: COLITIS ULCERATIVE
     Dosage: 5 MG/KG
     Route: 042
     Dates: start: 20170303, end: 20180227
  5. MESALAZINE [Concomitant]
     Active Substance: MESALAMINE
  6. REMICADE [Suspect]
     Active Substance: INFLIXIMAB
     Route: 042
     Dates: start: 201905

REACTIONS (8)
  - Premature labour [Recovered/Resolved]
  - Melanocytic naevus [Unknown]
  - Exposure during pregnancy [Recovered/Resolved]
  - Dysplasia [Unknown]
  - Off label use [Unknown]
  - Product use issue [Unknown]
  - Colitis ulcerative [Recovered/Resolved]
  - Pseudopolyp [Unknown]

NARRATIVE: CASE EVENT DATE: 2017
